FAERS Safety Report 6412488-5 (Version None)
Quarter: 2009Q4

REPORT INFORMATION
  Report Type: 
  Country: None (occurrence: None)
  Receive Date: 20091023
  Receipt Date: 20081003
  Transmission Date: 20100525
  Serious: No
  Sender: FDA-Public Use
  Company Number: US-BRISTOL-MYERS SQUIBB COMPANY-14357974

PATIENT

DRUGS (1)
  1. KENALOG-40 [Suspect]
     Route: 042

REACTIONS (1)
  - MEDICATION ERROR [None]
